FAERS Safety Report 5942839-7 (Version None)
Quarter: 2008Q4

REPORT INFORMATION
  Report Type: 
  Country: None (occurrence: None)
  Receive Date: 20081103
  Receipt Date: 20081022
  Transmission Date: 20090506
  Serious: Yes (Hospitalization)
  Sender: FDA-Public Use
  Company Number: 2008BI024173

PATIENT
  Age: 35 Year
  Sex: Male

DRUGS (9)
  1. AVONEX [Suspect]
     Indication: MULTIPLE SCLEROSIS
     Dosage: 30 UG; QW; IM
     Route: 030
     Dates: start: 20051025
  2. BUPROPION HCL [Concomitant]
  3. CARISOPRODOL [Concomitant]
  4. IMITREX [Concomitant]
  5. CITALOPRAM HYDROBROMIDE [Concomitant]
  6. HYDROBROMIDE [Concomitant]
  7. PEPCID [Concomitant]
  8. BETASERON [Concomitant]
  9. COPAXONE [Concomitant]

REACTIONS (10)
  - BACK PAIN [None]
  - DEPRESSION [None]
  - DYSURIA [None]
  - HEADACHE [None]
  - INFLUENZA LIKE ILLNESS [None]
  - INTERVERTEBRAL DISC DEGENERATION [None]
  - INTERVERTEBRAL DISC DISORDER [None]
  - MULTIPLE SCLEROSIS RELAPSE [None]
  - REFLEXES ABNORMAL [None]
  - URINARY RETENTION [None]
